FAERS Safety Report 7657031-8 (Version None)
Quarter: 2011Q3

REPORT INFORMATION
  Report Type: 
  Country: None (occurrence: None)
  Receive Date: 20110804
  Receipt Date: 20081105
  Transmission Date: 20111222
  Serious: Yes (Disabling, Other)
  Sender: FDA-Public Use
  Company Number: US-BAYER-200836015NA

PATIENT
  Age: 56 Year
  Sex: Male
  Weight: 115.65 kg

DRUGS (34)
  1. OMNISCAN [Suspect]
     Indication: NUCLEAR MAGNETIC RESONANCE IMAGING BRAIN
     Dates: start: 20031111, end: 20031111
  2. DIOVAN [Concomitant]
  3. HYDROCHLOROTHIAZIDE [Concomitant]
  4. LIPITOR [Concomitant]
  5. FUROSEMIDE [Concomitant]
  6. MAGNEVIST [Suspect]
     Indication: ANGIOGRAM
  7. MULTIHANCE [Suspect]
     Indication: NUCLEAR MAGNETIC RESONANCE IMAGING
     Dates: start: 20070822, end: 20070822
  8. CYCLOBENZAPRINE [Concomitant]
  9. PROTONIX [Concomitant]
  10. AMARYL [Concomitant]
  11. AVANDIA [Concomitant]
  12. PREVACID [Concomitant]
  13. SINGULAIR [Concomitant]
  14. ADVAIR DISKUS 100/50 [Concomitant]
  15. TRAMADOL HCL [Concomitant]
  16. MAGNEVIST [Suspect]
     Indication: NUCLEAR MAGNETIC RESONANCE IMAGING
     Dosage: 20 ML, ONCE
     Dates: start: 20040420, end: 20040420
  17. MAGNEVIST [Suspect]
     Dates: start: 20060510, end: 20060510
  18. AGGRENOX [Concomitant]
  19. SYNTHROID [Concomitant]
  20. AMBIEN [Concomitant]
  21. ZETIA [Concomitant]
  22. ACTOS [Concomitant]
  23. GADOLINIUM IN UNSPECIFIED DRUG [Suspect]
     Indication: NUCLEAR MAGNETIC RESONANCE IMAGING BRAIN
     Dosage: UNK
     Dates: start: 20031105, end: 20031105
  24. CELEBREX [Concomitant]
  25. ACETYLSALICYLIC ACID SRT [Concomitant]
  26. BYETTA [Concomitant]
  27. ALPRAZOLAM [Concomitant]
  28. PROZAC [Concomitant]
  29. PLAVIX [Concomitant]
  30. BIAXIN [Concomitant]
  31. ZOCOR [Concomitant]
  32. PREDNISONE [Concomitant]
  33. TRICOR [Concomitant]
  34. LANTUS [Concomitant]

REACTIONS (15)
  - SENSORY LOSS [None]
  - NEPHROGENIC SYSTEMIC FIBROSIS [None]
  - PRURITUS GENERALISED [None]
  - SKIN TIGHTNESS [None]
  - SKIN DISCOLOURATION [None]
  - ARTHRALGIA [None]
  - JOINT RANGE OF MOTION DECREASED [None]
  - DEPRESSION [None]
  - ASTHENIA [None]
  - MUSCULOSKELETAL STIFFNESS [None]
  - GAIT DISTURBANCE [None]
  - SCAR [None]
  - SKIN HYPERTROPHY [None]
  - PAIN [None]
  - SKIN FIBROSIS [None]
